FAERS Safety Report 6425763-5 (Version None)
Quarter: 2009Q4

REPORT INFORMATION
  Report Type: 
  Country: None (occurrence: None)
  Receive Date: 20091029
  Receipt Date: 20091016
  Transmission Date: 20100525
  Serious: Yes (Death, Hospitalization)
  Sender: FDA-Public Use
  Company Number: 2009AC000193

PATIENT
  Age: 80 Year
  Sex: Female

DRUGS (16)
  1. DIGOXIN [Suspect]
     Dosage: 0.125 MG;MWF;PO
     Route: 048
     Dates: start: 20060101
  2. EFFEXOR [Concomitant]
  3. REVATIO [Concomitant]
  4. PEPCID [Concomitant]
  5. ASPIRIN [Concomitant]
  6. LASIX [Concomitant]
  7. ENABLEX [Concomitant]
  8. VERSED [Concomitant]
  9. FENTANYL-100 [Concomitant]
  10. ATENOLOL [Concomitant]
  11. CRESTOR [Concomitant]
  12. ATACAND [Concomitant]
  13. ACIPHEX [Concomitant]
  14. METOCLOPRAMIDE [Concomitant]
  15. POTASSIUM CHLORIDE [Concomitant]
  16. ENABLEX [Concomitant]

REACTIONS (19)
  - AMNESIA [None]
  - CARDIAC FAILURE [None]
  - CHEST PAIN [None]
  - CONJUNCTIVITIS [None]
  - ECONOMIC PROBLEM [None]
  - EMOTIONAL DISORDER [None]
  - FALL [None]
  - FATIGUE [None]
  - HYPOXIA [None]
  - INJURY [None]
  - NAUSEA [None]
  - OEDEMA PERIPHERAL [None]
  - PNEUMONIA [None]
  - PULMONARY HYPERTENSION [None]
  - RENAL FAILURE [None]
  - SOCIAL PROBLEM [None]
  - SYNCOPE [None]
  - URINARY TRACT INFECTION [None]
  - VOMITING [None]
